FAERS Safety Report 23870463 (Version 2)
Quarter: 2024Q2

REPORT INFORMATION
  Report Type: Report from Study
  Country: CA (occurrence: CA)
  Receive Date: 20240518
  Receipt Date: 20240627
  Transmission Date: 20240716
  Serious: No
  Sender: FDA-Public Use
  Company Number: CA-CELLTRION INC.-2024CA010769

PATIENT

DRUGS (7)
  1. BEVACIZUMAB [Suspect]
     Active Substance: BEVACIZUMAB
     Indication: Hereditary haemorrhagic telangiectasia
     Dosage: 525 MILLIGRAM, Q4WEEKS
     Route: 042
  2. BEVACIZUMAB [Suspect]
     Active Substance: BEVACIZUMAB
     Indication: Anaemia
     Dosage: 525 MILLIGRAM, Q2WEEKS
     Route: 042
  3. BISOPROLOL [Concomitant]
     Active Substance: BISOPROLOL\BISOPROLOL FUMARATE
     Dosage: 5 NANOGRAM, 1 EVERY 1 DAYS
     Route: 065
  4. FERROUS FUMARATE [Concomitant]
     Active Substance: FERROUS FUMARATE
     Route: 065
  5. FUROSEMIDE [Concomitant]
     Active Substance: FUROSEMIDE
     Dosage: 80 MILLIGRAM
     Route: 042
  6. FERROUS SULFATE ANHYDROUS [Concomitant]
     Active Substance: FERROUS SULFATE ANHYDROUS
     Indication: Anaemia
     Dosage: 300 MILLIGRAM, 1 EVERY 3 DAYS
     Route: 065
  7. TRANEXAMIC ACID [Concomitant]
     Active Substance: TRANEXAMIC ACID
     Route: 045

REACTIONS (3)
  - Pleural effusion [Unknown]
  - Heart rate increased [Unknown]
  - Intentional product use issue [Unknown]
